FAERS Safety Report 5366391-2 (Version None)
Quarter: 2007Q2

REPORT INFORMATION
  Report Type: 
  Country: None (occurrence: None)
  Receive Date: 20070622
  Receipt Date: 20070614
  Transmission Date: 20071010
  Serious: Yes (Hospitalization)
  Sender: FDA-Public Use
  Company Number: PHHO2007TW08514

PATIENT
  Age: 19 Year
  Sex: Female
  Weight: 46.5 kg

DRUGS (1)
  1. GLEEVEC [Suspect]
     Indication: CHRONIC MYELOID LEUKAEMIA
     Dosage: 400 MG, QD
     Route: 048
     Dates: start: 20060809, end: 20070518

REACTIONS (5)
  - ABDOMINAL PAIN LOWER [None]
  - HAEMORRHAGIC ASCITES [None]
  - HAEMORRHAGIC OVARIAN CYST [None]
  - OVARIAN CYST RUPTURED [None]
  - OVARIAN ENLARGEMENT [None]
